FAERS Safety Report 4688766-7 (Version None)
Quarter: 2005Q2

REPORT INFORMATION
  Report Type: 
  Country: None (occurrence: None)
  Receive Date: 20050610
  Receipt Date: 20050610
  Transmission Date: 20051028
  Serious: Yes (Hospitalization)
  Sender: FDA-Public Use
  Company Number: None

PATIENT
  Sex: Male
  Weight: 66 kg

DRUGS (2)
  1. HEPARIN [Suspect]
     Indication: ANTICOAGULANT THERAPY
     Dosage: 15, 000 UNITS IV BOLUS (ONCE)
     Route: 042
  2. HEPARIN [Suspect]
     Indication: SURGERY
     Dosage: 15, 000 UNITS IV BOLUS (ONCE)
     Route: 042

REACTIONS (2)
  - PLATELET AGGREGATION ABNORMAL [None]
  - PLATELET COUNT DECREASED [None]
